FAERS Safety Report 9408358 (Version 1)
Quarter: 2013Q3

REPORT INFORMATION
  Report Type: Spontaneous
  Country: GB (occurrence: GB)
  Receive Date: 20130716
  Receipt Date: 20130716
  Transmission Date: 20140515
  Serious: Yes (Other)
  Sender: FDA-Public Use
  Company Number: GER/UKI/13/0031424

PATIENT
  Age: 81 Year
  Sex: Female

DRUGS (2)
  1. AMLODIPINE (AMLODIPINE) [Suspect]
     Indication: BLOOD PRESSURE
     Route: 048
  2. LUCENTIS (RANIBIZUMAB) [Concomitant]

REACTIONS (2)
  - Macular degeneration [None]
  - Visual impairment [None]
